FAERS Safety Report 9777825 (Version 1)
Quarter: 2013Q4

REPORT INFORMATION
  Report Type: Spontaneous
  Country: US (occurrence: US)
  Receive Date: 20131223
  Receipt Date: 20131223
  Transmission Date: 20140711
  Serious: Yes (Hospitalization)
  Sender: FDA-Public Use
  Company Number: US-ROCHE-1319231

PATIENT
  Sex: Male

DRUGS (3)
  1. PULMOZYME [Suspect]
     Indication: PNEUMOTHORAX
     Dosage: 2.5 MG BY INHALATION BID
     Route: 065
     Dates: start: 20130409, end: 20130424
  2. PULMOZYME [Suspect]
     Indication: PULMONARY EMBOLISM
  3. PULMOZYME [Suspect]
     Indication: PNEUMONIA

REACTIONS (4)
  - Cardiac arrest [Not Recovered/Not Resolved]
  - Pneumonia [Unknown]
  - Pneumothorax [Unknown]
  - Bronchitis [Unknown]
